FAERS Safety Report 11156099 (Version 1)
Quarter: 2015Q2

REPORT INFORMATION
  Report Type: Spontaneous
  Country: US (occurrence: US)
  Receive Date: 20150602
  Receipt Date: 20150602
  Transmission Date: 20150821
  Serious: Yes (Other)
  Sender: FDA-Public Use
  Company Number: US-SA-2015SA072850

PATIENT
  Age: 78 Year
  Sex: Female

DRUGS (3)
  1. LEUCOVORIN [Concomitant]
     Active Substance: LEUCOVORIN
     Indication: COLORECTAL CANCER STAGE II
  2. FLUOROURACIL. [Concomitant]
     Active Substance: FLUOROURACIL
     Indication: COLORECTAL CANCER STAGE II
  3. OXALIPLATIN. [Suspect]
     Active Substance: OXALIPLATIN
     Indication: COLORECTAL CANCER STAGE II
     Route: 065

REACTIONS (6)
  - Splenomegaly [Recovering/Resolving]
  - Abdominal distension [Recovering/Resolving]
  - Ascites [Recovered/Resolved]
  - Blood albumin decreased [Recovered/Resolved]
  - Drug-induced liver injury [Recovering/Resolving]
  - Portal hypertension [Recovering/Resolving]
